FAERS Safety Report 18197771 (Version 2)
Quarter: 2020Q4

REPORT INFORMATION
  Report Type: Spontaneous
  Country: US (occurrence: US)
  Receive Date: 20200826
  Receipt Date: 20201116
  Transmission Date: 20210113
  Serious: No
  Sender: FDA-Public Use
  Company Number: US-PFIZER INC-2020329452

PATIENT
  Age: 51 Year
  Sex: Female

DRUGS (2)
  1. TOVIAZ [Suspect]
     Active Substance: FESOTERODINE FUMARATE
     Dosage: 4 MG, ALTERNATE DAY [TAKE ONE EVERY OTHER DAY]
  2. TOVIAZ [Suspect]
     Active Substance: FESOTERODINE FUMARATE
     Dosage: UNK, DAILY (TAKE THEM EVERY DAY)

REACTIONS (2)
  - Amnesia [Unknown]
  - Intentional product misuse [Unknown]
